FAERS Safety Report 18489729 (Version 3)
Quarter: 2020Q4

REPORT INFORMATION
  Report Type: Report from Study
  Country: US (occurrence: US)
  Receive Date: 20201111
  Receipt Date: 20201121
  Transmission Date: 20210114
  Serious: Yes (Other)
  Sender: FDA-Public Use
  Company Number: NVSC2020US297463

PATIENT
  Age: 41 Year
  Sex: Female

DRUGS (3)
  1. ENTRESTO [Suspect]
     Active Substance: SACUBITRIL\VALSARTAN
     Indication: PRODUCT USED FOR UNKNOWN INDICATION
     Dosage: UNK UNK, BID
     Route: 048
  2. ENTRESTO [Suspect]
     Active Substance: SACUBITRIL\VALSARTAN
     Dosage: 100 MG
     Route: 048
  3. METHOCARBAMOL. [Suspect]
     Active Substance: METHOCARBAMOL
     Indication: FIBROMYALGIA
     Dosage: UNK
     Route: 065
     Dates: end: 20201107

REACTIONS (12)
  - Muscle spasms [Unknown]
  - Drug withdrawal syndrome [Unknown]
  - Fibromyalgia [Unknown]
  - Stress [Unknown]
  - Bone pain [Unknown]
  - Arthralgia [Unknown]
  - Fluid imbalance [Unknown]
  - Decreased activity [Unknown]
  - Myalgia [Unknown]
  - Thyroid disorder [Unknown]
  - Hypotension [Unknown]
  - Back pain [Unknown]
